FAERS Safety Report 4594775-9 (Version None)
Quarter: 2005Q1

REPORT INFORMATION
  Report Type: 
  Country: None (occurrence: None)
  Receive Date: 20050223
  Receipt Date: 20050218
  Transmission Date: 20050727
  Serious: Yes (Other)
  Sender: FDA-Public Use
  Company Number: GBWYE447222FEB05

PATIENT
  Age: 61 Year
  Sex: Female

DRUGS (21)
  1. EFFEXOR XR [Suspect]
     Indication: PAIN
     Dosage: 75 MG 1X PER 1 DAY
     Route: 048
     Dates: start: 20041231
  2. AMITRIPTYLINE HCL [Concomitant]
  3. DIHYDROCODEINE (DIHYDROCODEINE) [Concomitant]
  4. CO-CODAMOL (CODEINE PHOSPHATE/PARACETAMOL) [Concomitant]
  5. GAVISCON ADVANCE (POTASSIUM BICARBONATE/SODIUM ALGINATE) [Concomitant]
  6. LIDOCAINE [Concomitant]
  7. DEPO-MEDROL [Concomitant]
  8. TRANSVASIN (BENZOCAINE/ETHYL NICOTINATE/HEXYL NICOTINATE/THURFYL SALIC [Concomitant]
  9. MONO-TILDIEM - SLOW RELEASE (DILTIAZEM HYDROCHLORIDE) [Concomitant]
  10. HUMAN MIXTARD 30 GE (INSULIN INJECTION, BIPHASIC) [Concomitant]
  11. NICORANDIL (NICORANDIL) [Concomitant]
  12. CLOPIDOGREL BISULFATE [Concomitant]
  13. ASPIRIN [Concomitant]
  14. NIZATIDINE [Concomitant]
  15. ATORVASTATIN (ATORVASTATIN) [Concomitant]
  16. BENDROFLUAZIDE (BENDROFLUMETHIAZIDE) [Concomitant]
  17. RAMIPRIL [Concomitant]
  18. ZOPICLONE (ZOPICLONE) [Concomitant]
  19. GTN (GLYCERYL TRINITRATE) [Concomitant]
  20. ACETAMINOPHEN [Concomitant]
  21. GAVISCON [Concomitant]

REACTIONS (6)
  - AGITATION [None]
  - CONFUSIONAL STATE [None]
  - EMOTIONAL DISTRESS [None]
  - FEAR [None]
  - HALLUCINATION [None]
  - PANIC ATTACK [None]
